FAERS Safety Report 25765549 (Version 2)
Quarter: 2025Q3

REPORT INFORMATION
  Report Type: Report from Study
  Country: US (occurrence: US)
  Receive Date: 20250905
  Receipt Date: 20250908
  Transmission Date: 20251021
  Serious: Yes (Death, Other)
  Sender: ROCHE
  Company Number: US-ROCHE-10000379361

PATIENT

DRUGS (5)
  1. RITUXIMAB [Suspect]
     Active Substance: RITUXIMAB
     Indication: Diffuse large B-cell lymphoma
     Dosage: FOR 6 CYCLES.
     Route: 065
  2. POLATUZUMAB VEDOTIN [Suspect]
     Active Substance: POLATUZUMAB VEDOTIN
     Indication: Diffuse large B-cell lymphoma
     Dosage: FOR 6 CYCLES.
     Route: 065
  3. CYCLOPHOSPHAMIDE [Suspect]
     Active Substance: CYCLOPHOSPHAMIDE
     Indication: Diffuse large B-cell lymphoma
     Dosage: 375-600 MG/M2  FOR 6 CYCLES.
     Route: 065
  4. DOXORUBICIN [Suspect]
     Active Substance: DOXORUBICIN
     Indication: Diffuse large B-cell lymphoma
     Dosage: 25-40 MG/M2 FOR 6 CYCLES.
     Route: 065
  5. PREDNISONE [Suspect]
     Active Substance: PREDNISONE
     Indication: Diffuse large B-cell lymphoma
     Dosage: FOR 6 CYCLES.
     Route: 065

REACTIONS (12)
  - Acute kidney injury [Unknown]
  - Anaemia [Unknown]
  - Cardiac arrest [Fatal]
  - Febrile neutropenia [Unknown]
  - Hyperkalaemia [Unknown]
  - Infection [Fatal]
  - Hypokalaemia [Unknown]
  - Hyponatraemia [Unknown]
  - Lymphopenia [Unknown]
  - Left ventricular dysfunction [Unknown]
  - Nausea [Unknown]
  - Thrombocytopenia [Unknown]
